FAERS Safety Report 5473428-9 (Version None)
Quarter: 2007Q4

REPORT INFORMATION
  Report Type: 
  Country: None (occurrence: None)
  Receive Date: 20071001
  Receipt Date: 20070921
  Transmission Date: 20080405
  Serious: Yes (Other)
  Sender: FDA-Public Use
  Company Number: GB-ASTRAZENECA-2007GB01972

PATIENT
  Age: 73 Year
  Sex: Female

DRUGS (9)
  1. LIDOCAINE [Suspect]
     Indication: ANAESTHESIA
     Route: 065
     Dates: start: 20070605, end: 20070605
  2. ADRENALINE [Concomitant]
     Route: 065
     Dates: start: 20070504
  3. BETNOVATE-N [Concomitant]
     Route: 031
     Dates: start: 20070504
  4. CHLORAMPHENICOL [Concomitant]
     Route: 031
  5. CYCLOPENTOLATE HCL [Concomitant]
     Route: 031
     Dates: start: 20070504
  6. FLURBIPROFEN SODIUM [Concomitant]
     Route: 031
     Dates: start: 20070504
  7. PHENYLEPHRINE [Concomitant]
     Dates: start: 20070504
  8. POVIDONE [Concomitant]
     Route: 065
     Dates: start: 20070504
  9. VANCOMYCIN [Concomitant]
     Route: 065
     Dates: start: 20070504

REACTIONS (1)
  - TOXIC ANTERIOR SEGMENT SYNDROME [None]
